FAERS Safety Report 4919083-5 (Version None)
Quarter: 2006Q1

REPORT INFORMATION
  Report Type: 
  Country: None (occurrence: None)
  Receive Date: 20060222
  Receipt Date: 20060213
  Transmission Date: 20060701
  Serious: Yes (Other)
  Sender: FDA-Public Use
  Company Number: US-JNJFOC-20060104351

PATIENT
  Age: 75 Year
  Sex: Female

DRUGS (6)
  1. REMICADE [Suspect]
     Indication: RHEUMATOID ARTHRITIS
     Route: 042
  2. METHOTREXATE [Concomitant]
     Indication: RHEUMATOID ARTHRITIS
  3. PREDNISONE [Concomitant]
     Indication: RHEUMATOID ARTHRITIS
  4. LEVOXYL [Concomitant]
     Indication: HYPOTHYROIDISM
  5. FOSAMAX [Concomitant]
     Indication: OSTEOPOROSIS
  6. ASPIRIN [Concomitant]

REACTIONS (1)
  - LUNG ADENOCARCINOMA [None]
